FAERS Safety Report 5246416-5 (Version None)
Quarter: 2007Q1

REPORT INFORMATION
  Report Type: 
  Country: None (occurrence: None)
  Receive Date: 20070222
  Receipt Date: 20070222
  Transmission Date: 20070707
  Serious: Yes (Life-Threatening, Hospitalization)
  Sender: FDA-Public Use
  Company Number: None

PATIENT
  Age: 63 Year
  Sex: Male
  Weight: 87.7 kg

DRUGS (2)
  1. LISINOPRIL [Suspect]
     Indication: HYPERTENSION
     Dosage: 10MG DAILY P.O.
     Route: 048
     Dates: start: 20051101, end: 20070201
  2. FLUVASTATIN NA [Concomitant]

REACTIONS (1)
  - PHARYNGEAL OEDEMA [None]
